FAERS Safety Report 7290509-8 (Version None)
Quarter: 2011Q1

REPORT INFORMATION
  Report Type: 
  Country: None (occurrence: None)
  Receive Date: 20110214
  Receipt Date: 20110131
  Transmission Date: 20110831
  Serious: No
  Sender: FDA-Public Use
  Company Number: US-PFIZER INC-2011030347

PATIENT
  Age: 71 Year
  Sex: Male

DRUGS (1)
  1. AMIODARONE HCL [Suspect]

REACTIONS (1)
  - LUNG DISORDER [None]
